FAERS Safety Report 11148451 (Version 1)
Quarter: 2015Q2

REPORT INFORMATION
  Report Type: Spontaneous
  Country: FR (occurrence: FR)
  Receive Date: 20150529
  Receipt Date: 20150529
  Transmission Date: 20150821
  Serious: Yes (Hospitalization)
  Sender: FDA-Public Use
  Company Number: FR-SA-2015SA070890

PATIENT
  Age: 76 Year
  Sex: Female

DRUGS (14)
  1. LOVENOX [Suspect]
     Active Substance: ENOXAPARIN SODIUM
     Indication: DEEP VEIN THROMBOSIS
     Dosage: DOSE AND DAILY DOSE: 0.4 (UNITS UNSPECIFIED)
     Route: 058
     Dates: start: 20150413, end: 20150420
  2. ACUPAN [Concomitant]
     Active Substance: NEFOPAM HYDROCHLORIDE
     Dosage: STRENGTH AND FREQUENCY:20 MG: X 3/DAY
  3. LOVENOX [Suspect]
     Active Substance: ENOXAPARIN SODIUM
     Indication: DEEP VEIN THROMBOSIS
     Route: 058
     Dates: start: 201504, end: 20150410
  4. KEPPRA [Concomitant]
     Active Substance: LEVETIRACETAM
     Dosage: STRENGTH, DOSE AND FREQUENCY: 250 MG: 1 - 0 - 1
  5. COUMADIN [Suspect]
     Active Substance: WARFARIN SODIUM
     Indication: DEEP VEIN THROMBOSIS
     Dosage: 3/4 TAB/DAY?STRENGTH: 2 MG
     Route: 058
     Dates: start: 20150319, end: 20150411
  6. DAFALGAN [Concomitant]
     Active Substance: ACETAMINOPHEN
     Dosage: STRENGTH, DOSE AND FREQUENCY: 1 GM: X 4/DAY
  7. SOLUPRED [Concomitant]
     Active Substance: PREDNISOLONE
     Dosage: STRENGTH AND FREQUENCY: 20 MG: 2 - 0 - 0
  8. MINISINTROM [Suspect]
     Active Substance: ACENOCOUMAROL
     Indication: DEEP VEIN THROMBOSIS
     Dosage: STRENGTH: 1 MG?DOSE: 0-0-2
     Route: 048
     Dates: start: 201501, end: 20150305
  9. URBANYL [Concomitant]
     Active Substance: CLOBAZAM
     Dosage: STRENGTH AND FREQUENCY: 5 MG: 1 - 0 - 1
  10. AUGMENTIN [Concomitant]
     Active Substance: AMOXICILLIN\CLAVULANATE POTASSIUM
     Dosage: STRENGTH AND FREQUENCY: 1 G: X 3/DAY
  11. TRAMADOL [Concomitant]
     Active Substance: TRAMADOL
     Dosage: STRENGTH, DOSE AND FREQUENCY: 50 MG: 1 TABLET X 3/DAY IF NEEDED
  12. LOVENOX [Suspect]
     Active Substance: ENOXAPARIN SODIUM
     Indication: DEEP VEIN THROMBOSIS
     Dosage: 1 - 0 - 1?0.6 2X /DAY (0.6 ,2 DAY (S))
     Route: 058
     Dates: start: 20150316, end: 201504
  13. LOVENOX [Suspect]
     Active Substance: ENOXAPARIN SODIUM
     Indication: DEEP VEIN THROMBOSIS
     Route: 058
     Dates: start: 20150411, end: 20150412
  14. MINISINTROM [Suspect]
     Active Substance: ACENOCOUMAROL
     Indication: DEEP VEIN THROMBOSIS
     Dosage: STRENGTH: 1 MG
     Route: 065
     Dates: start: 20150316, end: 20150411

REACTIONS (5)
  - Subdural haematoma [Recovered/Resolved]
  - International normalised ratio increased [Recovered/Resolved]
  - Headache [Recovered/Resolved]
  - Language disorder [Recovered/Resolved]
  - Spontaneous haematoma [Recovered/Resolved]

NARRATIVE: CASE EVENT DATE: 201503
